FAERS Safety Report 13552618 (Version 5)
Quarter: 2018Q3

REPORT INFORMATION
  Report Type: Spontaneous
  Country: FR (occurrence: FR)
  Receive Date: 20170517
  Receipt Date: 20180911
  Transmission Date: 20181010
  Serious: Yes (Life-Threatening, Hospitalization, Other)
  Sender: FDA-Public Use
  Company Number: FR-AUROBINDO-AUR-APL-2017-33862

PATIENT

DRUGS (18)
  1. TROPATEPINE [Suspect]
     Active Substance: TROPATEPINE
     Indication: PRODUCT USED FOR UNKNOWN INDICATION
     Dosage: 300 MILLIGRAM
     Route: 065
  2. LEPTICUR [Suspect]
     Active Substance: TROPATEPINE HYDROCHLORIDE
     Dosage: 30 TABLETS OF 10 MG ; IN TOTAL
     Route: 048
  3. LEPTICUR [Suspect]
     Active Substance: TROPATEPINE HYDROCHLORIDE
     Indication: SUICIDE ATTEMPT
     Dosage: 300 MG, TOTAL
     Route: 048
  4. LOXAPINE. [Concomitant]
     Active Substance: LOXAPINE
     Indication: PRODUCT USED FOR UNKNOWN INDICATION
     Dosage: UNK
     Route: 065
  5. LOXAPINE. [Concomitant]
     Active Substance: LOXAPINE
     Dosage: ()
     Route: 065
  6. CLONAZEPAM. [Concomitant]
     Active Substance: CLONAZEPAM
     Indication: ANTICHOLINERGIC SYNDROME
     Dosage: 1 MG, UNK
     Route: 042
  7. PARACETAMOL [Suspect]
     Active Substance: ACETAMINOPHEN
     Indication: SUICIDE ATTEMPT
     Dosage: 8 G (1X)
     Route: 048
  8. PARACETAMOL [Suspect]
     Active Substance: ACETAMINOPHEN
     Dosage: 8 G ; IN TOTAL
     Route: 048
  9. LEPTICUR [Suspect]
     Active Substance: TROPATEPINE HYDROCHLORIDE
     Dosage: ()
     Route: 048
  10. NEOSTIGMINE [Suspect]
     Active Substance: NEOSTIGMINE
  11. NEOSTIGMINE [Suspect]
     Active Substance: NEOSTIGMINE
     Dosage: 0.5 UNK, 2ND INFUSION
  12. CLONAZEPAM. [Concomitant]
     Active Substance: CLONAZEPAM
     Dosage: ()
  13. NEOSTIGMINE [Suspect]
     Active Substance: NEOSTIGMINE
     Dosage: 0.5 MG, INJECTION
  14. LEPTICUR [Suspect]
     Active Substance: TROPATEPINE HYDROCHLORIDE
     Indication: SUICIDAL IDEATION
     Dosage: 10 MG, 30 TABLETS
  15. PARACETAMOL [Suspect]
     Active Substance: ACETAMINOPHEN
     Indication: SUICIDAL IDEATION
     Dosage: 8 GRAM, TOTAL
     Route: 065
  16. NEOSTIGMINE [Suspect]
     Active Substance: NEOSTIGMINE
     Indication: ANTICHOLINERGIC SYNDROME
     Dosage: 0.5 MG, UNK
     Route: 042
  17. NEOSTIGMINE [Suspect]
     Active Substance: NEOSTIGMINE
     Dosage: 0.5 MG, 2ND INFUSION
     Route: 065
  18. NEOSTIGMINE [Suspect]
     Active Substance: NEOSTIGMINE
     Dosage: 0.5 MG, INJECTION
     Route: 065

REACTIONS (11)
  - Confusional state [Recovering/Resolving]
  - Tachycardia [Recovering/Resolving]
  - Toxicity to various agents [Unknown]
  - Anticholinergic syndrome [Recovering/Resolving]
  - Mydriasis [Recovering/Resolving]
  - Intentional overdose [Recovered/Resolved]
  - Off label use [Unknown]
  - Suicide attempt [Recovering/Resolving]
  - Hyperthermia [Recovering/Resolving]
  - Agitation [Recovering/Resolving]
  - Hypertonia [Recovering/Resolving]
